FAERS Safety Report 19790132 (Version 6)
Quarter: 2024Q2

REPORT INFORMATION
  Report Type: Spontaneous
  Country: US (occurrence: US)
  Receive Date: 20210905
  Receipt Date: 20240611
  Transmission Date: 20240716
  Serious: Yes (Hospitalization)
  Sender: FDA-Public Use
  Company Number: US-SUN PHARMACEUTICAL INDUSTRIES LTD-2021R1-304854

PATIENT
  Sex: Female
  Weight: 120.18 kg

DRUGS (8)
  1. EPOPROSTENOL [Suspect]
     Active Substance: EPOPROSTENOL
     Indication: Pulmonary arterial hypertension
     Dosage: 40 NG/KG/MIN, CONTINUOUS
     Route: 042
     Dates: start: 20210317
  2. EPOPROSTENOL [Suspect]
     Active Substance: EPOPROSTENOL
     Dosage: 40 NG/KG/MIN- CONTINUOUS
     Route: 042
     Dates: start: 20210316
  3. EPOPROSTENOL [Suspect]
     Active Substance: EPOPROSTENOL
     Dosage: 40 NG/KG/MIN- CONTINUOUS
     Route: 042
     Dates: start: 20210316
  4. EPOPROSTENOL [Suspect]
     Active Substance: EPOPROSTENOL
     Dosage: 40 NG/KG/MIN- CONTINUOUS
     Route: 042
     Dates: start: 20210316
  5. EPOPROSTENOL [Suspect]
     Active Substance: EPOPROSTENOL
     Dosage: 40 NG/KG/MIN- CONTINUOUS
     Route: 042
     Dates: start: 20210316
  6. VELETRI [Concomitant]
     Active Substance: EPOPROSTENOL
     Indication: Pulmonary arterial hypertension
     Dosage: UNK
     Route: 065
  7. TADALAFIL [Concomitant]
     Active Substance: TADALAFIL
     Indication: Product used for unknown indication
     Dosage: UNK
     Route: 065
  8. WARFARIN [Concomitant]
     Active Substance: WARFARIN
     Indication: Product used for unknown indication
     Dosage: UNK
     Route: 065

REACTIONS (6)
  - Complication associated with device [Unknown]
  - Device malfunction [Unknown]
  - Dyspnoea [Unknown]
  - Flushing [Unknown]
  - Diarrhoea [Unknown]
  - Oedema peripheral [Unknown]
